FAERS Safety Report 11609247 (Version 1)
Quarter: 2015Q3

REPORT INFORMATION
  Report Type: Spontaneous
  Country: US (occurrence: US)
  Receive Date: 20150916
  Receipt Date: 20150916
  Transmission Date: 20151125
  Serious: No
  Sender: FDA-Public Use
  Company Number: US-ELI_LILLY_AND_COMPANY-US201310004775

PATIENT
  Sex: Male
  Weight: 33.11 kg

DRUGS (2)
  1. HUMALOG [Suspect]
     Active Substance: INSULIN LISPRO
     Indication: PRODUCT USED FOR UNKNOWN INDICATION
     Dosage: UNK
     Route: 058
  2. LANTUS [Concomitant]
     Active Substance: INSULIN GLARGINE
     Dosage: UNK

REACTIONS (5)
  - Infusion site irritation [Unknown]
  - Feeling abnormal [Unknown]
  - Dehydration [Unknown]
  - Blood ketone body [Unknown]
  - Blood glucose increased [Unknown]
